FAERS Safety Report 9921785 (Version 1)
Quarter: 2014Q1

REPORT INFORMATION
  Report Type: Spontaneous
  Country: US (occurrence: None)
  Receive Date: 20140221
  Receipt Date: 20140221
  Transmission Date: 20141002
  Serious: No
  Sender: FDA-Public Use
  Company Number: None

PATIENT
  Age: 68 Year
  Sex: Female
  Weight: 63.5 kg

DRUGS (6)
  1. NAPROXEN [Suspect]
     Indication: ARTHROPATHY
     Dosage: 2 PILLS DAILY WITH MEALS
     Route: 048
     Dates: start: 20131113, end: 20140106
  2. PREMARIN [Concomitant]
  3. SPIRONOLACT [Concomitant]
  4. CALCIUM W/ VITAMIN D [Concomitant]
  5. GLUCOSAMINE W/ CHONDROITIN [Concomitant]
  6. ZOLPIDEM [Concomitant]

REACTIONS (4)
  - Rash [None]
  - Blister [None]
  - Stomatitis [None]
  - Mouth haemorrhage [None]
